FAERS Safety Report 8095618-1 (Version None)
Quarter: 2012Q1

REPORT INFORMATION
  Report Type: 
  Country: None (occurrence: None)
  Receive Date: 20120129
  Receipt Date: 20111228
  Transmission Date: 20120608
  Serious: No
  Sender: FDA-Public Use
  Company Number: US-ABBOTT-11P-163-0887213-00

PATIENT
  Sex: Female
  Weight: 49.94 kg

DRUGS (4)
  1. VICODIN [Concomitant]
     Indication: PAIN
  2. MELOXICAM [Concomitant]
     Indication: SWELLING
  3. HUMIRA [Suspect]
     Indication: RHEUMATOID ARTHRITIS
     Dates: start: 20111001, end: 20111101
  4. TRAMADOL HCL [Concomitant]
     Indication: PAIN

REACTIONS (5)
  - SINUSITIS [None]
  - SINUS HEADACHE [None]
  - RHEUMATOID ARTHRITIS [None]
  - OEDEMA PERIPHERAL [None]
  - MOVEMENT DISORDER [None]
